FAERS Safety Report 25839109 (Version 2)
Quarter: 2025Q4

REPORT INFORMATION
  Report Type: Spontaneous
  Country: EU (occurrence: EU)
  Receive Date: 20250924
  Receipt Date: 20251008
  Transmission Date: 20260118
  Serious: Yes (Life-Threatening)
  Sender: EMD SERONO INC
  Company Number: None

PATIENT
  Age: 70 Year
  Sex: Female

DRUGS (15)
  1. LEVOTHYROXINE SODIUM [Suspect]
     Active Substance: LEVOTHYROXINE SODIUM
     Indication: Hypopituitarism
  2. HYDROCORTISONE [Suspect]
     Active Substance: HYDROCORTISONE
     Indication: Hypopituitarism
  3. HYDROCORTISONE [Suspect]
     Active Substance: HYDROCORTISONE
  4. HYDROCORTISONE [Suspect]
     Active Substance: HYDROCORTISONE
  5. MINIRIN [Suspect]
     Active Substance: DESMOPRESSIN ACETATE
     Indication: Hypopituitarism
  6. MINIRIN [Suspect]
     Active Substance: DESMOPRESSIN ACETATE
  7. AMLODIPINE [Concomitant]
     Active Substance: AMLODIPINE BESYLATE
     Indication: Product used for unknown indication
     Dosage: 1-0-0
  8. CANDESARTAN [Concomitant]
     Active Substance: CANDESARTAN
     Indication: Product used for unknown indication
     Dosage: 1-0-1
  9. PANTOPRAZOLE [Concomitant]
     Active Substance: PANTOPRAZOLE
     Indication: Product used for unknown indication
     Dosage: 1-0-0
  10. FOLIC ACID [Concomitant]
     Active Substance: FOLIC ACID
     Indication: Product used for unknown indication
     Dosage: 1-0-0
  11. VENLAFAXINE [Concomitant]
     Active Substance: VENLAFAXINE HYDROCHLORIDE
     Indication: Product used for unknown indication
     Dosage: 0-0-1
  12. ACETAMINOPHEN [Concomitant]
     Active Substance: ACETAMINOPHEN
     Indication: Product used for unknown indication
     Dosage: IF NECESSARY.
  13. COSMETICS [Concomitant]
     Active Substance: COSMETICS
     Indication: Post procedural infection
     Dosage: 1 MORNING APPLICATION TO PATIENT FOLLOWED SINCE DEC-2024 OF TOTAL RIGHT KNEE PROSTHESIS
  14. PIPERACILLIN SODIUM\TAZOBACTAM SODIUM [Concomitant]
     Active Substance: PIPERACILLIN SODIUM\TAZOBACTAM SODIUM
     Indication: Staphylococcal infection
  15. DAPTOMYCIN [Concomitant]
     Active Substance: DAPTOMYCIN
     Indication: Staphylococcal infection

REACTIONS (3)
  - Condition aggravated [Recovered/Resolved]
  - Transcription medication error [Recovered/Resolved]
  - Product dose omission in error [Recovered/Resolved]

NARRATIVE: CASE EVENT DATE: 20250619
